FAERS Safety Report 6930745-0 (Version None)
Quarter: 2010Q3

REPORT INFORMATION
  Report Type: 
  Country: None (occurrence: None)
  Receive Date: 20100810
  Receipt Date: 20100614
  Transmission Date: 20110219
  Serious: Yes (Other)
  Sender: FDA-Public Use
  Company Number: 2010060485

PATIENT
  Age: 72 Year
  Sex: Female
  Weight: 68 kg

DRUGS (3)
  1. FLAGYL [Suspect]
     Indication: ORAL INFECTION
     Dosage: 250 MG, 3X/DAY
     Dates: start: 20100402
  2. DIFLUCAN [Suspect]
     Indication: FUNGAL INFECTION
     Dosage: 100 MG, 1X/DAY, ORAL
     Route: 048
     Dates: start: 20100511
  3. NYSTATIN [Concomitant]

REACTIONS (2)
  - DRUG HYPERSENSITIVITY [None]
  - FUNGAL INFECTION [None]
